FAERS Safety Report 18664218 (Version 4)
Quarter: 2021Q3

REPORT INFORMATION
  Report Type: Spontaneous
  Country: GB (occurrence: GB)
  Receive Date: 20201225
  Receipt Date: 20210818
  Transmission Date: 20211014
  Serious: Yes (Other)
  Sender: FDA-Public Use
  Company Number: GB-BIOVITRUM-2020GB7866

PATIENT
  Age: 50 Year
  Sex: Male

DRUGS (1)
  1. ORFADIN [Suspect]
     Active Substance: NITISINONE
     Indication: ALKAPTONURIA
     Dates: start: 2014

REACTIONS (5)
  - Cataract [Unknown]
  - Amino acid level increased [Not Recovered/Not Resolved]
  - Lenticular opacities [Not Recovered/Not Resolved]
  - Dry eye [Not Recovered/Not Resolved]
  - Conjunctival disorder [Not Recovered/Not Resolved]

NARRATIVE: CASE EVENT DATE: 2015
